FAERS Safety Report 18452397 (Version 1)
Quarter: 2020Q4

REPORT INFORMATION
  Report Type: Spontaneous
  Country: US (occurrence: US)
  Receive Date: 20201102
  Receipt Date: 20201102
  Transmission Date: 20210114
  Serious: Yes (Hospitalization, Other)
  Sender: FDA-Public Use
  Company Number: US-ASTELLAS-2020US038157

PATIENT
  Age: 66 Year
  Sex: Male

DRUGS (2)
  1. MYCOPHENOLATE [Concomitant]
     Active Substance: MYCOPHENOLIC ACID
     Indication: RENAL TRANSPLANT
     Dosage: UNK UNK, UNKNOWN FREQ.
     Route: 065
  2. TACROLIMUS. [Suspect]
     Active Substance: TACROLIMUS
     Indication: RENAL TRANSPLANT
     Dosage: UNK UNK, UNKNOWN FREQ.
     Route: 065

REACTIONS (10)
  - Staphylococcal infection [Unknown]
  - Pathogen resistance [Unknown]
  - Septic shock [Unknown]
  - Bacterial sepsis [Unknown]
  - Pneumonia aspiration [Unknown]
  - Leuconostoc infection [Unknown]
  - Respiratory failure [Unknown]
  - Pneumonia [Unknown]
  - Condition aggravated [Unknown]
  - Bacteraemia [Unknown]
